FAERS Safety Report 20510147 (Version 1)
Quarter: 2022Q1

REPORT INFORMATION
  Report Type: Spontaneous
  Country: FR (occurrence: FR)
  Receive Date: 20220224
  Receipt Date: 20220224
  Transmission Date: 20220423
  Serious: Yes (Death, Other)
  Sender: FDA-Public Use
  Company Number: FR-AFSSAPS-AVCN20220132

PATIENT
  Age: 33 Year
  Sex: Male

DRUGS (5)
  1. ACETAMINOPHEN [Suspect]
     Active Substance: ACETAMINOPHEN
     Indication: Product used for unknown indication
     Dosage: UNK (UNSPECIFIED)
     Route: 065
     Dates: end: 202112
  2. CODEINE [Suspect]
     Active Substance: CODEINE
     Indication: Product used for unknown indication
     Dosage: UNK (UNSPECIFIED)
     Route: 065
     Dates: end: 202112
  3. ALCOHOL [Suspect]
     Active Substance: ALCOHOL
     Indication: Product used for unknown indication
     Dosage: UNK (UNSPECIFIED)
     Route: 065
     Dates: end: 202112
  4. MORPHINE HYDROCHLORIDE [Suspect]
     Active Substance: MORPHINE HYDROCHLORIDE
     Indication: Product used for unknown indication
     Dosage: UNK (UNSPECIFIED)
     Route: 065
     Dates: end: 202112
  5. PAPAVERINE [Suspect]
     Active Substance: PAPAVERINE
     Indication: Product used for unknown indication
     Dosage: UNK (UNSPECIFIED)
     Route: 065
     Dates: end: 202112

REACTIONS (3)
  - Asphyxia [Fatal]
  - Respiratory depression [Fatal]
  - Drug abuse [Fatal]

NARRATIVE: CASE EVENT DATE: 20211201
